FAERS Safety Report 17750515 (Version 4)
Quarter: 2021Q2

REPORT INFORMATION
  Report Type: Spontaneous
  Country: US (occurrence: US)
  Receive Date: 20200506
  Receipt Date: 20210624
  Transmission Date: 20210716
  Serious: Yes (Other)
  Sender: FDA-Public Use
  Company Number: US-GILEAD-2020-0463824

PATIENT
  Age: 40 Year
  Sex: Male

DRUGS (13)
  1. AMOXICILLIN. [Concomitant]
     Active Substance: AMOXICILLIN
  2. OMEPRAZOLE. [Concomitant]
     Active Substance: OMEPRAZOLE
  3. VIREAD [Suspect]
     Active Substance: TENOFOVIR DISOPROXIL FUMARATE
     Indication: HIV INFECTION
     Dosage: UNK
     Route: 065
  4. ASPIRIN [ACETYLSALICYLIC ACID] [Concomitant]
     Active Substance: ASPIRIN
  5. FAMOTIDINE. [Concomitant]
     Active Substance: FAMOTIDINE
  6. PENICILLIN NOS [Concomitant]
     Active Substance: PENICILLIN
  7. ATRIPLA [Suspect]
     Active Substance: EFAVIRENZ\EMTRICITABINE\TENOFOVIR DISOPROXIL FUMARATE
     Indication: HIV INFECTION
     Dosage: UNK
     Route: 048
     Dates: start: 2007, end: 201912
  8. AMPICILLIN [Concomitant]
     Active Substance: AMPICILLIN
  9. JULUCA [Concomitant]
     Active Substance: DOLUTEGRAVIR SODIUM\RILPIVIRINE HYDROCHLORIDE
  10. ACETAMINOPHEN. [Concomitant]
     Active Substance: ACETAMINOPHEN
  11. RANITIDINE. [Concomitant]
     Active Substance: RANITIDINE
  12. COMBIVIR [Concomitant]
     Active Substance: LAMIVUDINE\ZIDOVUDINE
  13. FLOMAX [Concomitant]
     Active Substance: TAMSULOSIN HYDROCHLORIDE

REACTIONS (13)
  - Chronic kidney disease [Unknown]
  - Ulna fracture [Unknown]
  - Osteomalacia [Not Recovered/Not Resolved]
  - Multiple fractures [Not Recovered/Not Resolved]
  - Pain [Unknown]
  - Foot fracture [Unknown]
  - Osteoporosis [Not Recovered/Not Resolved]
  - Emotional distress [Unknown]
  - Bone density decreased [Unknown]
  - End stage renal disease [Not Recovered/Not Resolved]
  - Renal failure [Unknown]
  - Osteopenia [Not Recovered/Not Resolved]
  - Tooth loss [Not Recovered/Not Resolved]

NARRATIVE: CASE EVENT DATE: 2007
